FAERS Safety Report 8491137-9 (Version None)
Quarter: 2012Q2

REPORT INFORMATION
  Report Type: 
  Country: None (occurrence: None)
  Receive Date: 20120402
  Receipt Date: 20111206
  Transmission Date: 20120825
  Serious: Yes (Other)
  Sender: FDA-Public Use
  Company Number: 312506USA

PATIENT
  Sex: Female

DRUGS (1)
  1. LEVOFLOXACIN [Suspect]
     Dosage: 750 MG (750 MG,1 IN 1 D)
     Dates: start: 20110901

REACTIONS (12)
  - OEDEMA MOUTH [None]
  - LIP SWELLING [None]
  - ARTHRALGIA [None]
  - SWOLLEN TONGUE [None]
  - EFFUSION [None]
  - BACK PAIN [None]
  - CONSTIPATION [None]
  - SWELLING [None]
  - PAIN [None]
  - SINUS DISORDER [None]
  - JOINT EFFUSION [None]
  - PAIN IN EXTREMITY [None]
